FAERS Safety Report 24808577 (Version 1)
Quarter: 2025Q1

REPORT INFORMATION
  Report Type: Spontaneous
  Country: US (occurrence: US)
  Receive Date: 20250106
  Receipt Date: 20250106
  Transmission Date: 20250408
  Serious: No
  Sender: TEVA
  Company Number: US-TEVA-VS-3277305

PATIENT
  Age: 74 Year
  Sex: Female
  Weight: 51.8 kg

DRUGS (1)
  1. AUSTEDO [Suspect]
     Active Substance: DEUTETRABENAZINE
     Indication: Huntington^s disease
     Dosage: 12MG TABLETS, 1 TABLET TWICE DAILY, STARTED YEARS AGO (EXACT START DATE?UNKNOWN)
     Route: 065

REACTIONS (3)
  - Drug ineffective [Unknown]
  - Product use in unapproved indication [Unknown]
  - Inappropriate schedule of product administration [Unknown]
